FAERS Safety Report 4657440-5 (Version None)
Quarter: 2005Q2

REPORT INFORMATION
  Report Type: 
  Country: None (occurrence: None)
  Receive Date: 20050506
  Receipt Date: 20050429
  Transmission Date: 20051028
  Serious: Yes (Hospitalization)
  Sender: FDA-Public Use
  Company Number: KII-2005-0016444

PATIENT
  Age: 14 Month
  Sex: Male

DRUGS (6)
  1. MORPHINE SULFATE [Suspect]
     Dosage: ORAL
     Route: 048
     Dates: start: 20050407
  2. TOPROL-XL [Suspect]
     Dosage: ORAL
     Route: 048
     Dates: start: 20050407
  3. ACETAMINOPHEN AND HYDROCODONE BITARTRATE [Suspect]
     Dosage: ORAL
     Route: 048
     Dates: start: 20050407
  4. SERUMLIPIDREDUCING AGENTS() [Suspect]
     Dosage: ORAL
     Route: 048
     Dates: start: 20050407
  5. BENZODIAZEPINE DERIVATIVES() [Suspect]
     Dosage: ORAL
     Route: 048
     Dates: start: 20050407
  6. TRAZODONE HCL [Suspect]
     Dosage: ORAL
     Route: 048
     Dates: start: 20050407

REACTIONS (5)
  - ACCIDENTAL EXPOSURE [None]
  - ATRIOVENTRICULAR BLOCK FIRST DEGREE [None]
  - LETHARGY [None]
  - OPIATES [None]
  - SOMNOLENCE [None]
